FAERS Safety Report 7481197-6 (Version None)
Quarter: 2011Q2

REPORT INFORMATION
  Report Type: 
  Country: None (occurrence: None)
  Receive Date: 20110512
  Receipt Date: 20110512
  Transmission Date: 20111010
  Serious: Yes (Other)
  Sender: FDA-Public Use
  Company Number: None

PATIENT
  Sex: Female
  Weight: 50.3493 kg

DRUGS (2)
  1. VISTARIL [Suspect]
     Indication: ANXIETY
     Dosage: 50MG EVERY 6HRS  4-5  - 4-19
  2. BACLOFEN [Suspect]
     Indication: MUSCLE SPASMS
     Dosage: 20MG EVERY 6HRS  4-4 - CONTION

REACTIONS (9)
  - CONFUSIONAL STATE [None]
  - DIZZINESS [None]
  - FEELING ABNORMAL [None]
  - DYSARTHRIA [None]
  - HALLUCINATION [None]
  - MENTAL IMPAIRMENT [None]
  - MEMORY IMPAIRMENT [None]
  - DYSSTASIA [None]
  - VISUAL IMPAIRMENT [None]
